FAERS Safety Report 9384206 (Version 1)
Quarter: 2013Q3

REPORT INFORMATION
  Report Type: Spontaneous
  Country: US (occurrence: None)
  Receive Date: 20130702
  Receipt Date: 20130702
  Transmission Date: 20140515
  Serious: Yes (Other)
  Sender: FDA-Public Use
  Company Number: None

PATIENT
  Age: 47 Year
  Sex: Female

DRUGS (1)
  1. QSYMIA [Suspect]
     Indication: WEIGHT DECREASED
     Dosage: 1, QAM
     Route: 048
     Dates: start: 20130424, end: 20130620

REACTIONS (1)
  - Visual impairment [None]
